FAERS Safety Report 8517038-5 (Version None)
Quarter: 2012Q3

REPORT INFORMATION
  Report Type: 
  Country: None (occurrence: None)
  Receive Date: 20120706
  Receipt Date: 20120625
  Transmission Date: 20120928
  Serious: Yes (Other)
  Sender: FDA-Public Use
  Company Number: 2012P1046137

PATIENT
  Age: 78 Year
  Sex: Female

DRUGS (1)
  1. EPHEDRINE HCL 1PC SOL [Suspect]
     Indication: NASAL CONGESTION
     Dosage: ;X4;

REACTIONS (1)
  - ANGINA PECTORIS [None]
